FAERS Safety Report 10625972 (Version 1)
Quarter: 2014Q4

REPORT INFORMATION
  Report Type: Spontaneous
  Country: US (occurrence: US)
  Receive Date: 20141204
  Receipt Date: 20141204
  Transmission Date: 20150529
  Serious: Yes (Hospitalization, Other)
  Sender: FDA-Public Use
  Company Number: US-GLAXOSMITHKLINE-US2014GSK027158

PATIENT
  Age: 39 Year
  Sex: Female

DRUGS (20)
  1. SPIRONOLACTONE. [Concomitant]
     Active Substance: SPIRONOLACTONE
  2. VITAMIN B COMPLEX [Concomitant]
     Active Substance: CYANOCOBALAMIN\DEXPANTHENOL\NIACINAMIDE\PYRIDOXINE HYDROCHLORIDE\RIBOFLAVIN 5^-PHOSPHATE SODIUM\THIAMINE HYDROCHLORIDE\VITAMIN B COMPLEX
  3. REQUIP [Suspect]
     Active Substance: ROPINIROLE HYDROCHLORIDE
     Indication: RESTLESS LEGS SYNDROME
     Dosage: 0.5 MG, U
     Route: 048
     Dates: start: 20100825
  4. KLOR-CON [Concomitant]
     Active Substance: POTASSIUM CHLORIDE
  5. PROTONIX [Concomitant]
     Active Substance: PANTOPRAZOLE SODIUM
  6. LISINOPRIL. [Concomitant]
     Active Substance: LISINOPRIL
  7. MELATONIN [Concomitant]
     Active Substance: MELATONIN
  8. METFORMIN [Concomitant]
     Active Substance: METFORMIN HYDROCHLORIDE
  9. TRICOR [Concomitant]
     Active Substance: FENOFIBRATE
  10. GLIPIZIDE. [Concomitant]
     Active Substance: GLIPIZIDE
  11. METOPROLOL [Concomitant]
     Active Substance: METOPROLOL
  12. WARFARIN [Concomitant]
     Active Substance: WARFARIN
  13. LASIX [Concomitant]
     Active Substance: FUROSEMIDE
  14. AMITRIPTYLINE [Concomitant]
     Active Substance: AMITRIPTYLINE
  15. GABAPENTIN. [Concomitant]
     Active Substance: GABAPENTIN
  16. ADVAIR DISKUS [Suspect]
     Active Substance: FLUTICASONE PROPIONATE\SALMETEROL XINAFOATE
     Indication: ASTHMA
     Dosage: 1 PUFF(S), U
     Route: 055
     Dates: start: 2000
  17. CELEXA [Concomitant]
     Active Substance: CITALOPRAM HYDROBROMIDE
  18. VENTOLIN HFA [Suspect]
     Active Substance: ALBUTEROL SULFATE
     Indication: ASTHMA
     Dosage: 2 PUFF(S), BID
     Route: 055
     Dates: start: 2000
  19. MULTIVITAMIN [Concomitant]
     Active Substance: VITAMINS
  20. SIMVASTATIN. [Concomitant]
     Active Substance: SIMVASTATIN

REACTIONS (17)
  - Deep vein thrombosis [Recovered/Resolved]
  - Diabetic neuropathy [Not Recovered/Not Resolved]
  - Restless legs syndrome [Not Recovered/Not Resolved]
  - Vomiting [Recovered/Resolved]
  - Condition aggravated [Unknown]
  - Post-traumatic stress disorder [Not Recovered/Not Resolved]
  - Back disorder [Not Recovered/Not Resolved]
  - Epistaxis [Unknown]
  - Anxiety [Not Recovered/Not Resolved]
  - Arthropathy [Unknown]
  - Cardiac failure congestive [Not Recovered/Not Resolved]
  - Ventricular flutter [Recovered/Resolved]
  - Pulmonary embolism [Recovered/Resolved]
  - Respiratory arrest [Recovered/Resolved]
  - Cough [Recovered/Resolved]
  - Rotator cuff syndrome [Unknown]
  - Malaise [Unknown]

NARRATIVE: CASE EVENT DATE: 201008
